FAERS Safety Report 25771443 (Version 1)
Quarter: 2025Q3

REPORT INFORMATION
  Report Type: Spontaneous
  Country: US (occurrence: US)
  Receive Date: 20250908
  Receipt Date: 20250908
  Transmission Date: 20251020
  Serious: No
  Sender: DOMPE FARMACEUTICI
  Company Number: US-FARMAPROD-202504-1279

PATIENT
  Age: 97 Year
  Sex: Female

DRUGS (10)
  1. OXERVATE [Suspect]
     Active Substance: CENEGERMIN-BKBJ
     Indication: Neurotrophic keratopathy
     Route: 047
     Dates: start: 20220207, end: 20220401
  2. OXERVATE [Suspect]
     Active Substance: CENEGERMIN-BKBJ
     Dates: start: 20250403
  3. TYLENOL ARTHRITIS PAIN [Concomitant]
     Active Substance: ACETAMINOPHEN
  4. CALTRATE [Concomitant]
     Active Substance: CALCIUM CARBONATE
  5. MINERALS\VITAMINS [Concomitant]
     Active Substance: MINERALS\VITAMINS
  6. HYDROCHLOROTHIAZIDE\TRIAMTERENE [Concomitant]
     Active Substance: HYDROCHLOROTHIAZIDE\TRIAMTERENE
  7. PAROXETINE [Concomitant]
     Active Substance: PAROXETINE
  8. LATANOPROST [Concomitant]
     Active Substance: LATANOPROST
  9. RESTASIS [Concomitant]
     Active Substance: CYCLOSPORINE
  10. REFRESH CLASSIC LUBRICANT EYE DROPS [Concomitant]

REACTIONS (7)
  - Eye pain [Unknown]
  - Eye swelling [Unknown]
  - Ocular hyperaemia [Not Recovered/Not Resolved]
  - Adverse drug reaction [Unknown]
  - Lacrimation increased [Unknown]
  - Eye pruritus [Unknown]
  - Vitreous floaters [Not Recovered/Not Resolved]

NARRATIVE: CASE EVENT DATE: 20250406
